FAERS Safety Report 23098819 (Version 1)
Quarter: 2023Q4

REPORT INFORMATION
  Report Type: Spontaneous
  Country: US (occurrence: US)
  Receive Date: 20231024
  Receipt Date: 20231024
  Transmission Date: 20240109
  Serious: Yes (Disabling, Other)
  Sender: FDA-Public Use
  Company Number: US-OPELLA-2023OHG011812

PATIENT
  Sex: Male

DRUGS (1)
  1. TALC [Suspect]
     Active Substance: TALC
     Indication: Product used for unknown indication

REACTIONS (4)
  - Mesothelioma malignant [Unknown]
  - Impaired work ability [Unknown]
  - Exposure to chemical pollution [Unknown]
  - Emotional distress [Unknown]
